FAERS Safety Report 16182080 (Version 3)
Quarter: 2019Q2

REPORT INFORMATION
  Report Type: Report from Study
  Country: US (occurrence: US)
  Receive Date: 20190410
  Receipt Date: 20190621
  Transmission Date: 20190711
  Serious: Yes (Other)
  Sender: FDA-Public Use
  Company Number: PHEH2019US015180

PATIENT
  Sex: Male

DRUGS (1)
  1. ENTRESTO [Suspect]
     Active Substance: SACUBITRIL\VALSARTAN
     Indication: CARDIAC FAILURE
     Dosage: 50 MG, (24 MG SACUBITRIL, 26 MG VALSARTAN) BID
     Route: 048
     Dates: start: 201604, end: 201904

REACTIONS (3)
  - Leukaemia [Unknown]
  - White blood cell count increased [Not Recovered/Not Resolved]
  - Prostatic specific antigen increased [Unknown]
